FAERS Safety Report 26056815 (Version 1)
Quarter: 2025Q4

REPORT INFORMATION
  Report Type: Spontaneous
  Country: TR (occurrence: TR)
  Receive Date: 20251118
  Receipt Date: 20251118
  Transmission Date: 20260119
  Serious: Yes (Death, Life-Threatening)
  Sender: PHARMOBEDIENT CONSULTING, LLC
  Company Number: TR-Pharmobedient-000482

PATIENT
  Age: 19 Year
  Sex: Male
  Weight: 115 kg

DRUGS (1)
  1. PREGABALIN [Suspect]
     Active Substance: PREGABALIN
     Indication: Product used for unknown indication

REACTIONS (3)
  - Intentional product misuse [Unknown]
  - Sedation [Unknown]
  - Road traffic accident [Fatal]
